FAERS Safety Report 24265955 (Version 2)
Quarter: 2024Q4

REPORT INFORMATION
  Report Type: Spontaneous
  Country: AU (occurrence: AU)
  Receive Date: 20240830
  Receipt Date: 20241111
  Transmission Date: 20250115
  Serious: Yes (Hospitalization, Other)
  Sender: AMGEN
  Company Number: AU-AMGEN-AUSSP2024159848

PATIENT
  Sex: Female

DRUGS (1)
  1. ADALIMUMAB [Suspect]
     Active Substance: ADALIMUMAB
     Indication: Colitis ulcerative
     Dosage: UNK
     Route: 065
     Dates: start: 20240520

REACTIONS (11)
  - Hernia [Unknown]
  - Pancreatitis [Recovered/Resolved]
  - Fatigue [Recovering/Resolving]
  - Joint swelling [Recovering/Resolving]
  - Peripheral swelling [Recovering/Resolving]
  - Cellulitis [Recovering/Resolving]
  - Oral candidiasis [Recovering/Resolving]
  - Abdominal wound dehiscence [Recovering/Resolving]
  - Inflammation [Recovering/Resolving]
  - Colitis ulcerative [Recovering/Resolving]
  - Transfusion [Recovering/Resolving]

NARRATIVE: CASE EVENT DATE: 20240801
